FAERS Safety Report 11787333 (Version 3)
Quarter: 2016Q1

REPORT INFORMATION
  Report Type: Spontaneous
  Country: US (occurrence: US)
  Receive Date: 20151130
  Receipt Date: 20160105
  Transmission Date: 20160525
  Serious: Yes (Hospitalization, Other)
  Sender: FDA-Public Use
  Company Number: US-PFIZER INC-2015400590

PATIENT
  Age: 59 Year
  Sex: Female
  Weight: 73 kg

DRUGS (5)
  1. NEURONTIN [Suspect]
     Active Substance: GABAPENTIN
     Indication: NERVE INJURY
     Dosage: 100 MG, 1X/DAY
  2. DEPAKOTE [Suspect]
     Active Substance: DIVALPROEX SODIUM
     Indication: BIPOLAR DISORDER
  3. DEPAKOTE [Suspect]
     Active Substance: DIVALPROEX SODIUM
     Indication: MANIA
     Dosage: UNK
     Dates: start: 1995
  4. NEURONTIN [Suspect]
     Active Substance: GABAPENTIN
     Indication: ANEURYSM REPAIR
     Dosage: 100 MG 2-3 DAILY
     Dates: end: 201511
  5. NEURONTIN [Suspect]
     Active Substance: GABAPENTIN
     Indication: BACK PAIN

REACTIONS (3)
  - Loss of consciousness [Unknown]
  - Weight increased [Unknown]
  - Diverticulitis [Unknown]

NARRATIVE: CASE EVENT DATE: 20150805
